FAERS Safety Report 7456977-3 (Version None)
Quarter: 2011Q2

REPORT INFORMATION
  Report Type: 
  Country: None (occurrence: None)
  Receive Date: 20110504
  Receipt Date: 20110412
  Transmission Date: 20111010
  Serious: Yes (Hospitalization, Other)
  Sender: FDA-Public Use
  Company Number: US-BAYER-2010-009239

PATIENT
  Age: 41 Year
  Sex: Female
  Weight: 99.773 kg

DRUGS (4)
  1. YASMIN [Suspect]
     Indication: CONTRACEPTION
     Dosage: UNK
     Dates: start: 20050801, end: 20081001
  2. YASMIN [Suspect]
     Indication: PREMENSTRUAL SYNDROME
  3. DROSPIRENONE AND ETHINYL ESTRADIOL [Suspect]
     Indication: PREMENSTRUAL SYNDROME
  4. DROSPIRENONE AND ETHINYL ESTRADIOL [Suspect]
     Indication: CONTRACEPTION
     Dosage: UNK
     Dates: start: 20050801, end: 20081001

REACTIONS (4)
  - SUPERIOR SAGITTAL SINUS THROMBOSIS [None]
  - PAIN [None]
  - FEAR [None]
  - INJURY [None]
